FAERS Safety Report 6341869-3 (Version None)
Quarter: 2009Q3

REPORT INFORMATION
  Report Type: 
  Country: None (occurrence: None)
  Receive Date: 20090904
  Receipt Date: 20090831
  Transmission Date: 20100115
  Serious: Yes (Other)
  Sender: FDA-Public Use
  Company Number: BE-AMGEN-UK344379

PATIENT
  Sex: Female

DRUGS (1)
  1. VECTIBIX [Suspect]
     Indication: COLORECTAL CANCER
     Route: 065
     Dates: start: 20090113

REACTIONS (4)
  - ERYTHEMA [None]
  - MALIGNANT NEOPLASM PROGRESSION [None]
  - SKIN BURNING SENSATION [None]
  - SKIN REACTION [None]
